FAERS Safety Report 9698299 (Version 1)
Quarter: 2013Q4

REPORT INFORMATION
  Report Type: Spontaneous
  Country: GB (occurrence: GB)
  Receive Date: 20131120
  Receipt Date: 20131120
  Transmission Date: 20140711
  Serious: Yes (Hospitalization)
  Sender: FDA-Public Use
  Company Number: GB-WATSON-2013-21268

PATIENT
  Age: 82 Year
  Sex: Male

DRUGS (3)
  1. TRIMETHOPRIM (UNKNOWN) [Suspect]
     Indication: URINARY TRACT INFECTION
     Dosage: 200 MG, BID
     Route: 048
     Dates: start: 20130927
  2. FLUPENTIXOL DECANOATE [Suspect]
     Indication: SCHIZOPHRENIA
     Dosage: 50 MG, 1/TWO WEEKS
     Route: 030
  3. ZOLADEX LA [Concomitant]
     Indication: PRODUCT USED FOR UNKNOWN INDICATION
     Dosage: UNK
     Route: 065

REACTIONS (1)
  - Liver function test abnormal [Recovering/Resolving]
